FAERS Safety Report 21103084 (Version 1)
Quarter: 2022Q3

REPORT INFORMATION
  Report Type: Spontaneous
  Country: US (occurrence: US)
  Receive Date: 20220720
  Receipt Date: 20220720
  Transmission Date: 20221027
  Serious: No
  Sender: FDA-Public Use
  Company Number: US-ELI_LILLY_AND_COMPANY-US202207007412

PATIENT
  Sex: Male

DRUGS (1)
  1. HUMALOG KWIKPEN [Suspect]
     Active Substance: INSULIN LISPRO
     Indication: Type 1 diabetes mellitus
     Dosage: 30 U, DAILY, 30 UNITS SOMETIMES LESS
     Route: 065
     Dates: start: 202111, end: 20220709

REACTIONS (2)
  - Malaise [Unknown]
  - Wrong technique in product usage process [Unknown]
